FAERS Safety Report 19033750 (Version 2)
Quarter: 2023Q2

REPORT INFORMATION
  Report Type: Spontaneous
  Country: US (occurrence: US)
  Receive Date: 20210319
  Receipt Date: 20230501
  Transmission Date: 20230722
  Serious: Yes (Other)
  Sender: FDA-Public Use
  Company Number: US-JNJFOC-20210327249

PATIENT

DRUGS (3)
  1. IMBRUVICA [Suspect]
     Active Substance: IBRUTINIB
     Indication: Chronic lymphocytic leukaemia
     Dosage: 6-28-DAY CYCLES
     Route: 048
  2. IANALUMAB [Suspect]
     Active Substance: IANALUMAB
     Indication: Chronic lymphocytic leukaemia
     Dosage: 0.3, 1, 3, OR 9 MG/KG EVERY 2 WEEKS
  3. IANALUMAB [Suspect]
     Active Substance: IANALUMAB
     Indication: Chronic lymphocytic leukaemia
     Dosage: 0.3, 1, 3, OR 9 MG/KG EVERY 2 WEEKS
     Route: 042

REACTIONS (10)
  - Leukocytosis [Unknown]
  - Hypophosphataemia [Unknown]
  - Hypomagnesaemia [Unknown]
  - Hypokalaemia [Unknown]
  - Hypertension [Unknown]
  - Lymphocyte count increased [Unknown]
  - Neutrophil count decreased [Unknown]
  - White blood cell count decreased [Unknown]
  - Lipase increased [Unknown]
  - Lymphocyte count decreased [Unknown]
